FAERS Safety Report 19072527 (Version 4)
Quarter: 2021Q3

REPORT INFORMATION
  Report Type: Report from Study
  Country: CN (occurrence: CN)
  Receive Date: 20210330
  Receipt Date: 20210901
  Transmission Date: 20211014
  Serious: Yes (Death, Hospitalization)
  Sender: FDA-Public Use
  Company Number: CN-GLAXOSMITHKLINE-CN2020GSK207527

PATIENT
  Age: 60 Year
  Sex: Female
  Weight: 61 kg

DRUGS (15)
  1. NIRAPARIB [Suspect]
     Active Substance: NIRAPARIB
     Dosage: 100 MG, QD
     Dates: start: 20190111, end: 20200126
  2. RECOMBINANT HUMAN THROMBOPOIETIN [Concomitant]
     Active Substance: THROMBOPOIETIN
     Dosage: 15000 IU, QD
     Route: 058
     Dates: start: 20200905, end: 20200907
  3. NIRAPARIB [Suspect]
     Active Substance: NIRAPARIB
     Dosage: 100 MG, QD
     Dates: start: 20200930, end: 20201019
  4. PALONOSETRON. [Concomitant]
     Active Substance: PALONOSETRON HYDROCHLORIDE
     Indication: VOMITING
     Dosage: UNK
  5. PIPERACILLIN AND TAZOBACTAM [Concomitant]
     Active Substance: PIPERACILLIN SODIUM\TAZOBACTAM SODIUM
     Indication: INFECTION
     Dosage: 4.5 G, BID
     Route: 041
     Dates: start: 20201106
  6. RECOMBINANT HUMAN INTERLEUKIN 11 [Concomitant]
     Active Substance: OPRELVEKIN
     Dosage: 1.5 MG, QD
     Route: 058
     Dates: start: 20200903, end: 20200904
  7. ISEPAMICIN [Concomitant]
     Active Substance: ISEPAMICIN
     Indication: INFECTION
     Dosage: UNK
     Dates: start: 20201103
  8. BIAPENEM [Concomitant]
     Active Substance: BIAPENEM
     Indication: INFECTION
     Dosage: 0.3 G, TID
     Route: 041
  9. AZACITIDINE. [Concomitant]
     Active Substance: AZACITIDINE
     Dosage: 100 MG, QD
     Route: 058
     Dates: start: 20201026, end: 20201101
  10. NIRAPARIB [Suspect]
     Active Substance: NIRAPARIB
     Dosage: 100 MG, QD
     Dates: start: 20200128, end: 20200813
  11. NIRAPARIB [Suspect]
     Active Substance: NIRAPARIB
     Indication: OVARIAN CANCER
     Dosage: 200 MG, QD
     Dates: start: 20181206
  12. NIRAPARIB [Suspect]
     Active Substance: NIRAPARIB
     Dosage: 100 MG, QD
     Dates: start: 20200908, end: 20200930
  13. VENETOCLAX. [Concomitant]
     Active Substance: VENETOCLAX
     Dosage: TABLET ON DAY 1, 2 TABLETS ON DAY 2, AND 4 TABLETS DAILY
     Dates: start: 20201027
  14. ASMETON [Concomitant]
     Active Substance: AMINOPHYLLINE\CHLORPHENIRAMINE MALEATE\METHOXYPHENAMINE HYDROCHLORIDE\NOSCAPINE
     Indication: COUGH
     Dosage: UNK
  15. ISEPAMICIN [Concomitant]
     Active Substance: ISEPAMICIN
     Indication: PYREXIA
     Dosage: 0.4 G, QD
     Route: 042

REACTIONS (2)
  - Acute myeloid leukaemia [Fatal]
  - Haemorrhage intracranial [Fatal]

NARRATIVE: CASE EVENT DATE: 20201001
